FAERS Safety Report 5772451-4 (Version None)
Quarter: 2008Q2

REPORT INFORMATION
  Report Type: 
  Country: None (occurrence: None)
  Receive Date: 20080610
  Receipt Date: 20080530
  Transmission Date: 20081010
  Serious: Yes (Hospitalization)
  Sender: FDA-Public Use
  Company Number: 2008BI009499

PATIENT
  Age: 53 Year
  Sex: Female

DRUGS (1)
  1. AVONEX [Suspect]
     Indication: MULTIPLE SCLEROSIS
     Dosage: 30 UG; QW; IM
     Route: 030

REACTIONS (11)
  - ANGIOPATHY [None]
  - AORTIC THROMBOSIS [None]
  - ARTERIAL THROMBOSIS [None]
  - ARTERIOSCLEROSIS [None]
  - DIALYSIS [None]
  - DISORIENTATION [None]
  - LEG AMPUTATION [None]
  - PNEUMONIA [None]
  - RENAL FAILURE [None]
  - SKIN DISCOLOURATION [None]
  - THROMBOSIS [None]
